FAERS Safety Report 8567813-6 (Version None)
Quarter: 2012Q3

REPORT INFORMATION
  Report Type: 
  Country: None (occurrence: None)
  Receive Date: 20120803
  Receipt Date: 20120727
  Transmission Date: 20120928
  Serious: Yes (Hospitalization)
  Sender: FDA-Public Use
  Company Number: FR-PFIZER INC-2012182153

PATIENT
  Age: 68 Year
  Sex: Male

DRUGS (8)
  1. AZOPT [Concomitant]
     Indication: GLAUCOMA
     Dosage: UNK
     Route: 047
     Dates: start: 20120601, end: 20120603
  2. NEBIVOLOL [Concomitant]
     Dosage: 5 MG, UNK
  3. PLAVIX [Concomitant]
     Dosage: 75 MG, UNK
  4. FLECAINIDE ACETATE [Suspect]
     Dosage: 200 MG, 1X/DAY
     Route: 048
     Dates: start: 20110601, end: 20120613
  5. XALATAN [Suspect]
     Indication: GLAUCOMA
     Dosage: 1 DF, 1X/DAY
     Route: 047
  6. PERINDOPRIL ERBUMINE [Suspect]
     Dosage: 5 MG, UNK
     Route: 048
     Dates: start: 20110601
  7. ASPIRIN [Concomitant]
     Dosage: 160 MG, UNK
  8. CRESTOR [Concomitant]
     Dosage: 20 MG, UNK

REACTIONS (1)
  - TACHYCARDIA [None]
